FAERS Safety Report 19895281 (Version 1)
Quarter: 2021Q3

REPORT INFORMATION
  Report Type: Spontaneous
  Country: US (occurrence: US)
  Receive Date: 20210929
  Receipt Date: 20210929
  Transmission Date: 20211014
  Serious: No
  Sender: FDA-Public Use
  Company Number: None

PATIENT
  Age: 93 Year
  Sex: Female
  Weight: 60.75 kg

DRUGS (5)
  1. ZIAC 2.5?6.25MG [Concomitant]
  2. TESSALON PERLES 100MG [Concomitant]
  3. THYROID 90MG [Concomitant]
  4. AMLODIPINE [Concomitant]
     Active Substance: AMLODIPINE BESYLATE
  5. IBRANCE [Suspect]
     Active Substance: PALBOCICLIB
     Indication: BREAST CANCER
     Dosage: ?          OTHER FREQUENCY:QD FOR 21/28 DAYS;?
     Route: 048
     Dates: start: 20210805, end: 20210929

REACTIONS (1)
  - Hospice care [None]

NARRATIVE: CASE EVENT DATE: 20210929
